FAERS Safety Report 6138360-6 (Version None)
Quarter: 2009Q1

REPORT INFORMATION
  Report Type: 
  Country: None (occurrence: None)
  Receive Date: 20090331
  Receipt Date: 20090319
  Transmission Date: 20090719
  Serious: Yes (Death, Life-Threatening)
  Sender: FDA-Public Use
  Company Number: JP-PFIZER INC-2009173761

PATIENT

DRUGS (13)
  1. ZYVOX [Suspect]
     Indication: PNEUMONIA STAPHYLOCOCCAL
     Dosage: 600 MG, 2X/DAY
     Route: 042
     Dates: start: 20080105, end: 20080121
  2. AMINOTRIPA 1 [Concomitant]
  3. ELEMENMIC [Concomitant]
  4. VITAJECT [Concomitant]
  5. ALBUMIN HUMAN [Concomitant]
  6. ACARDI [Concomitant]
     Dosage: UNK
     Route: 048
     Dates: start: 20071115, end: 20080131
  7. SODIUM CHLORIDE [Concomitant]
     Dates: start: 20080116, end: 20080131
  8. TIENAM [Concomitant]
     Indication: PNEUMONIA STAPHYLOCOCCAL
     Dosage: UNK
     Route: 042
     Dates: start: 20071223, end: 20080131
  9. TORASEMIDE [Concomitant]
     Route: 048
     Dates: start: 20071115, end: 20080131
  10. TENORMIN [Concomitant]
     Route: 048
     Dates: start: 20071104, end: 20080131
  11. BENZALIN [Concomitant]
     Route: 048
     Dates: start: 20071104, end: 20080131
  12. ENSURE [Concomitant]
     Dates: start: 20080108, end: 20080131
  13. TIENAM [Concomitant]
     Route: 042
     Dates: start: 20071223, end: 20080131

REACTIONS (5)
  - ERYTHROPENIA [None]
  - LEUKOPENIA [None]
  - PNEUMONIA [None]
  - RIGHT VENTRICULAR FAILURE [None]
  - THROMBOCYTOPENIA [None]
